FAERS Safety Report 11177948 (Version 1)
Quarter: 2015Q2

REPORT INFORMATION
  Report Type: Spontaneous
  Country: US (occurrence: None)
  Receive Date: 20150609
  Receipt Date: 20150609
  Transmission Date: 20150821
  Serious: Yes (Hospitalization)
  Sender: FDA-Public Use
  Company Number: None

PATIENT
  Age: 68 Year
  Sex: Female
  Weight: 74.39 kg

DRUGS (11)
  1. LOVAZA [Concomitant]
     Active Substance: OMEGA-3-ACID ETHYL ESTERS
  2. LORAZAPAM [Concomitant]
     Active Substance: LORAZEPAM
  3. TURMERIC [Concomitant]
     Active Substance: TURMERIC
  4. ARIMIDEX [Suspect]
     Active Substance: ANASTROZOLE
     Indication: BREAST CANCER
     Route: 048
     Dates: start: 20150422, end: 20150429
  5. ZOLPIDEM [Concomitant]
     Active Substance: ZOLPIDEM\ZOLPIDEM TARTRATE
  6. RESTASIS [Concomitant]
     Active Substance: CYCLOSPORINE
  7. VITAMIN C [Concomitant]
     Active Substance: ASCORBIC ACID
  8. CURAMIN [Concomitant]
     Active Substance: HERBALS
  9. MULTIVITAMIN [Concomitant]
     Active Substance: VITAMINS
  10. VITAMIN B12 [Concomitant]
     Active Substance: CYANOCOBALAMIN
  11. PRIMROSE OIL [Concomitant]

REACTIONS (2)
  - Headache [None]
  - Atrial fibrillation [None]

NARRATIVE: CASE EVENT DATE: 20150422
